FAERS Safety Report 18147469 (Version 1)
Quarter: 2020Q3

REPORT INFORMATION
  Report Type: Spontaneous
  Country: IR (occurrence: IR)
  Receive Date: 20200813
  Receipt Date: 20200813
  Transmission Date: 20201103
  Serious: Yes (Hospitalization, Other)
  Sender: FDA-Public Use
  Company Number: IR-SA-2020SA199279

PATIENT

DRUGS (2)
  1. CHLORAMPHENICOL [Concomitant]
     Active Substance: CHLORAMPHENICOL
     Indication: INFECTION PROPHYLAXIS
     Dosage: 0.5 %, QID
     Route: 061
  2. AFLIBERCEPT [Suspect]
     Active Substance: AFLIBERCEPT
     Indication: RETINOPATHY OF PREMATURITY
     Dosage: 1MG/0.025ML
     Route: 031

REACTIONS (5)
  - Cerebrovascular accident [Unknown]
  - Musculoskeletal disorder [Unknown]
  - Ischaemic stroke [Unknown]
  - Agitation [Unknown]
  - Hypertensive crisis [Recovering/Resolving]
